FAERS Safety Report 9608505 (Version 1)
Quarter: 2013Q4

REPORT INFORMATION
  Report Type: Spontaneous
  Country: FR (occurrence: FR)
  Receive Date: 20131009
  Receipt Date: 20131009
  Transmission Date: 20140711
  Serious: Yes (Hospitalization)
  Sender: FDA-Public Use
  Company Number: FR-SA-2013SA099928

PATIENT
  Age: 77 Year
  Sex: Male

DRUGS (11)
  1. STILNOX [Suspect]
     Indication: AGITATION
     Route: 048
     Dates: start: 20130719, end: 20130813
  2. URBANYL [Suspect]
     Indication: PRODUCT USED FOR UNKNOWN INDICATION
     Dosage: 4 TO 5 DF DAILY
     Route: 048
     Dates: start: 2012, end: 20130813
  3. RISPERDAL [Suspect]
     Indication: AGITATION
     Route: 048
     Dates: start: 20130719, end: 20130813
  4. REMINYL LP [Concomitant]
     Dosage: PROLONGED CAPSULE
     Route: 048
     Dates: start: 2006
  5. SOTALOL [Concomitant]
     Dosage: STRENGTH: 80 MG
     Route: 048
  6. ATACAND [Concomitant]
     Dosage: STRENGTH: 8 MG
     Route: 048
  7. KARDEGIC [Concomitant]
     Dosage: STRENGTH: 75 MG
     Route: 048
  8. OMIX [Concomitant]
     Dosage: STRENGTH: 0.4 MG
     Route: 048
  9. AVODART [Concomitant]
     Dosage: STRENGTH: 0.5 MG
     Route: 048
  10. MELAXOSE [Concomitant]
     Route: 048
  11. METEOSPASMYL [Concomitant]
     Route: 048

REACTIONS (4)
  - Dysarthria [Recovered/Resolved]
  - Condition aggravated [Unknown]
  - Abnormal behaviour [Recovered/Resolved]
  - Somnolence [Recovered/Resolved]
